FAERS Safety Report 10210739 (Version 3)
Quarter: 2014Q3

REPORT INFORMATION
  Report Type: Report from Study
  Country: BR (occurrence: BR)
  Receive Date: 20140602
  Receipt Date: 20140828
  Transmission Date: 20150326
  Serious: Yes (Other)
  Sender: FDA-Public Use
  Company Number: PHHY2014BR064938

PATIENT
  Sex: Female
  Weight: 62 kg

DRUGS (7)
  1. DOSTINEX [Concomitant]
     Active Substance: CABERGOLINE
     Dosage: UNK UKN, UNK
     Route: 048
  2. CABERGOLINE. [Concomitant]
     Active Substance: CABERGOLINE
     Indication: ACROMEGALY
     Dosage: 6 DF, DAILY
     Route: 048
     Dates: start: 2008
  3. SANDOSTATIN LAR DEPOT [Suspect]
     Active Substance: OCTREOTIDE ACETATE
     Indication: ACROMEGALY
     Dosage: 10 MG, ONCE A MONTH
     Route: 030
     Dates: start: 200701, end: 200703
  4. CABERGOLINE. [Concomitant]
     Active Substance: CABERGOLINE
     Dosage: 9 DF, WEEKLY
     Route: 048
  5. AMITRIPTYLINE [Concomitant]
     Active Substance: AMITRIPTYLINE
     Indication: SLEEP DISORDER
     Dosage: 3 DF (AT NIGHT), DAILY
     Route: 048
     Dates: start: 2008
  6. PHENOBARBITAL. [Concomitant]
     Active Substance: PHENOBARBITAL
     Indication: SLEEP DISORDER
     Dosage: 1 DF, DAILY
     Route: 048
     Dates: start: 2013
  7. SANDOSTATIN LAR DEPOT [Suspect]
     Active Substance: OCTREOTIDE ACETATE
     Indication: PITUITARY TUMOUR
     Dosage: 20 MG, EVERY 15 DAYS
     Route: 030

REACTIONS (9)
  - Hypertension [Recovering/Resolving]
  - Inappropriate schedule of drug administration [Unknown]
  - Epilepsy [Not Recovered/Not Resolved]
  - Myalgia [Recovering/Resolving]
  - Pituitary tumour recurrent [Unknown]
  - Injection site pain [Recovering/Resolving]
  - Diabetes mellitus [Not Recovered/Not Resolved]
  - Depression [Recovering/Resolving]
  - Blood cholesterol increased [Not Recovered/Not Resolved]

NARRATIVE: CASE EVENT DATE: 2007
